FAERS Safety Report 20579194 (Version 1)
Quarter: 2022Q1

REPORT INFORMATION
  Report Type: Spontaneous
  Country: JP (occurrence: JP)
  Receive Date: 20220310
  Receipt Date: 20220310
  Transmission Date: 20220424
  Serious: Yes (Death, Other)
  Sender: FDA-Public Use
  Company Number: A202200076-002

PATIENT
  Age: 65 Year
  Sex: Female

DRUGS (9)
  1. BENDAMUSTINE HYDROCHLORIDE [Suspect]
     Active Substance: BENDAMUSTINE HYDROCHLORIDE
     Indication: Follicular lymphoma
     Dosage: 90 MG/M2, (CYCLE 1 GB THERAPY)
     Route: 041
     Dates: start: 20201222
  2. BENDAMUSTINE HYDROCHLORIDE [Suspect]
     Active Substance: BENDAMUSTINE HYDROCHLORIDE
     Dosage: 90 MG/M2, (CYCLE 2 GB THERAPY)
     Route: 041
     Dates: start: 20210119
  3. BENDAMUSTINE HYDROCHLORIDE [Suspect]
     Active Substance: BENDAMUSTINE HYDROCHLORIDE
     Dosage: 90 MG/M2, (CYCLE 3 GB THERAPY)
     Route: 041
     Dates: start: 20210216
  4. BENDAMUSTINE HYDROCHLORIDE [Suspect]
     Active Substance: BENDAMUSTINE HYDROCHLORIDE
     Dosage: 90 MG/M2, (CYCLE 4 GB THERAPY)
     Route: 041
     Dates: start: 20210316
  5. GAZYVA [Suspect]
     Active Substance: OBINUTUZUMAB
     Indication: Follicular lymphoma
     Dosage: 1000 MG, (CYCLE 1 GB THERAPY)
     Route: 041
     Dates: start: 20201222
  6. GAZYVA [Suspect]
     Active Substance: OBINUTUZUMAB
     Dosage: 1000 MG, (CYCLE 2 GB THERAPY)
     Route: 041
     Dates: start: 20210119
  7. GAZYVA [Suspect]
     Active Substance: OBINUTUZUMAB
     Dosage: 1000 MG, (CYCLE 3 GB THERAPY)
     Route: 041
     Dates: start: 20210216
  8. GAZYVA [Suspect]
     Active Substance: OBINUTUZUMAB
     Dosage: 1000 MG, (CYCLE 4 GB THERAPY)
     Route: 041
     Dates: start: 20210316
  9. GAZYVA [Suspect]
     Active Substance: OBINUTUZUMAB
     Dosage: 1000 MG, (CYCLE 1 MAINTENANCE THERAPY)
     Route: 041
     Dates: start: 20210713

REACTIONS (7)
  - COVID-19 [Fatal]
  - Platelet count decreased [Recovered/Resolved]
  - Neutrophil count decreased [Not Recovered/Not Resolved]
  - White blood cell count decreased [Recovering/Resolving]
  - Drug eruption [Unknown]
  - CD4 lymphocytes decreased [Unknown]
  - Hyponatraemia [Unknown]

NARRATIVE: CASE EVENT DATE: 20210101
